FAERS Safety Report 24701245 (Version 1)
Quarter: 2024Q4

REPORT INFORMATION
  Report Type: Spontaneous
  Country: CN (occurrence: CN)
  Receive Date: 20241205
  Receipt Date: 20241205
  Transmission Date: 20250115
  Serious: Yes (Other)
  Sender: GE HEALTHCARE
  Company Number: CN-GE HEALTHCARE-2024CSU013791

PATIENT
  Age: 72 Year
  Sex: Male
  Weight: 65 kg

DRUGS (2)
  1. OMNIPAQUE [Suspect]
     Active Substance: IOHEXOL
     Indication: Aneurysm repair
     Dosage: 80 ML, TOTAL
     Route: 013
     Dates: start: 20241119, end: 20241119
  2. OMNIPAQUE [Suspect]
     Active Substance: IOHEXOL
     Indication: Brain stent insertion

REACTIONS (2)
  - Muscular weakness [Recovered/Resolved]
  - Contrast encephalopathy [Unknown]

NARRATIVE: CASE EVENT DATE: 20241120
